FAERS Safety Report 5332721-0 (Version None)
Quarter: 2007Q2

REPORT INFORMATION
  Report Type: 
  Country: None (occurrence: None)
  Receive Date: 20070523
  Receipt Date: 20070511
  Transmission Date: 20071010
  Serious: Yes (Other)
  Sender: FDA-Public Use
  Company Number: US-PFIZER INC-2007037950

PATIENT
  Sex: Male
  Weight: 129.54 kg

DRUGS (5)
  1. SUTENT [Suspect]
     Indication: RENAL CELL CARCINOMA STAGE UNSPECIFIED
     Dates: start: 20070424, end: 20070507
  2. METHOTREXATE [Concomitant]
  3. LISINOPRIL [Concomitant]
  4. GLYBURIDE [Concomitant]
  5. METOPROLOL SUCCINATE [Concomitant]

REACTIONS (9)
  - BACK PAIN [None]
  - CONFUSIONAL STATE [None]
  - CONSTIPATION [None]
  - DIARRHOEA [None]
  - FATIGUE [None]
  - HEADACHE [None]
  - NAUSEA [None]
  - STOMATITIS [None]
  - VOMITING [None]
